FAERS Safety Report 12118823 (Version 2)
Quarter: 2016Q1

REPORT INFORMATION
  Report Type: Report from Study
  Country: BE (occurrence: BE)
  Receive Date: 20160226
  Receipt Date: 20160311
  Transmission Date: 20160526
  Serious: Yes (Other)
  Sender: FDA-Public Use
  Company Number: BE-BEH-2016059314

PATIENT
  Age: 54 Year
  Sex: Male
  Weight: 61 kg

DRUGS (1)
  1. HIZENTRA [Suspect]
     Active Substance: HUMAN IMMUNOGLOBULIN G
     Indication: PRODUCT USED FOR UNKNOWN INDICATION
     Route: 058

REACTIONS (2)
  - Diarrhoea [Not Recovered/Not Resolved]
  - Respiratory tract infection [Unknown]

NARRATIVE: CASE EVENT DATE: 20160110
